FAERS Safety Report 5381173-3 (Version None)
Quarter: 2007Q3

REPORT INFORMATION
  Report Type: 
  Country: None (occurrence: None)
  Receive Date: 20070706
  Receipt Date: 20070626
  Transmission Date: 20080115
  Serious: Yes (Hospitalization)
  Sender: FDA-Public Use
  Company Number: SE-PFIZER INC-2007052415

PATIENT
  Sex: Male

DRUGS (2)
  1. CHAMPIX [Suspect]
     Indication: PROPHYLAXIS
     Route: 048
     Dates: start: 20070124, end: 20070207
  2. SIMVASTATIN [Concomitant]

REACTIONS (1)
  - CONFUSIONAL STATE [None]
